FAERS Safety Report 25502758 (Version 4)
Quarter: 2025Q3

REPORT INFORMATION
  Report Type: Spontaneous
  Country: EU (occurrence: EU)
  Receive Date: 20250702
  Receipt Date: 20250725
  Transmission Date: 20251020
  Serious: Yes (Other)
  Sender: SANDOZ
  Company Number: EU-002147023-PHHY2017GR190078

PATIENT
  Age: 66 Year
  Sex: Female

DRUGS (12)
  1. CYCLOPHOSPHAMIDE [Suspect]
     Active Substance: CYCLOPHOSPHAMIDE
     Indication: Chronic lymphocytic leukaemia
     Dosage: UNK, QMO (3 CYCLES)
     Route: 065
     Dates: start: 201606, end: 201610
  2. CYCLOPHOSPHAMIDE [Suspect]
     Active Substance: CYCLOPHOSPHAMIDE
     Indication: Chronic lymphocytic leukaemia
  3. ELTROMBOPAG [Suspect]
     Active Substance: ELTROMBOPAG
     Indication: Chronic lymphocytic leukaemia
     Route: 065
  4. FLUDARABINE [Suspect]
     Active Substance: FLUDARABINE PHOSPHATE
     Indication: Chronic lymphocytic leukaemia
     Dosage: UNK, QMO
     Route: 065
     Dates: start: 201606, end: 201610
  5. FLUDARABINE [Suspect]
     Active Substance: FLUDARABINE PHOSPHATE
     Indication: Chronic lymphocytic leukaemia
     Dosage: UNK, QMO (3 CYCLES)
     Route: 065
     Dates: start: 201606, end: 201610
  6. FLUDARABINE [Suspect]
     Active Substance: FLUDARABINE PHOSPHATE
     Route: 065
     Dates: start: 201606, end: 201610
  7. HUMAN IMMUNOGLOBULIN G [Suspect]
     Active Substance: HUMAN IMMUNOGLOBULIN G
     Indication: Product used for unknown indication
     Route: 042
     Dates: start: 2016
  8. HUMAN IMMUNOGLOBULIN G [Suspect]
     Active Substance: HUMAN IMMUNOGLOBULIN G
     Indication: Chronic lymphocytic leukaemia
     Route: 042
     Dates: start: 2016
  9. PENTOSTATIN [Suspect]
     Active Substance: PENTOSTATIN
     Indication: Chronic lymphocytic leukaemia
     Route: 065
  10. RITUXIMAB [Suspect]
     Active Substance: RITUXIMAB
     Indication: Chronic lymphocytic leukaemia
     Dosage: UNK UNK, QMO (3 CYCLES)
     Route: 065
     Dates: start: 201606, end: 201610
  11. RUXOLITINIB [Suspect]
     Active Substance: RUXOLITINIB
     Indication: Chronic lymphocytic leukaemia
     Route: 065
  12. RUXOLITINIB [Suspect]
     Active Substance: RUXOLITINIB
     Indication: Chronic lymphocytic leukaemia

REACTIONS (9)
  - Lumbar vertebral fracture [Unknown]
  - Chronic lymphocytic leukaemia [Unknown]
  - Acute myeloid leukaemia [Unknown]
  - Thrombocytopenia [Not Recovered/Not Resolved]
  - Neutropenia [Not Recovered/Not Resolved]
  - Anaemia [Unknown]
  - Pancytopenia [Unknown]
  - Drug ineffective [Unknown]
  - Product use in unapproved indication [Unknown]
